FAERS Safety Report 10186575 (Version 3)
Quarter: 2014Q2

REPORT INFORMATION
  Report Type: Report from Study
  Country: US (occurrence: US)
  Receive Date: 20140521
  Receipt Date: 20140602
  Transmission Date: 20141212
  Serious: Yes (Other)
  Sender: FDA-Public Use
  Company Number: US-ACTELION-A-NJ2014-93533

PATIENT
  Age: 56 Year
  Sex: Female

DRUGS (1)
  1. TRACLEER [Suspect]
     Indication: PULMONARY ARTERIAL HYPERTENSION
     Dosage: 125 MG, BID
     Route: 048

REACTIONS (5)
  - Varicose vein operation [Recovering/Resolving]
  - Varicose vein [Recovering/Resolving]
  - Hepatic cirrhosis [Unknown]
  - Dyspnoea exertional [Unknown]
  - Sinus disorder [Unknown]
